FAERS Safety Report 7943181-5 (Version None)
Quarter: 2011Q4

REPORT INFORMATION
  Report Type: 
  Country: None (occurrence: None)
  Receive Date: 20111128
  Receipt Date: 20111117
  Transmission Date: 20120403
  Serious: Yes (Hospitalization, Other)
  Sender: FDA-Public Use
  Company Number: PHHY2011JP099134

PATIENT
  Sex: Female
  Weight: 58 kg

DRUGS (17)
  1. MARZULENE S [Concomitant]
     Dosage: 2 G, UNK
     Route: 048
     Dates: start: 20030513
  2. LANSOPRAZOLE [Concomitant]
     Dosage: 30 MG, UNK
     Route: 048
     Dates: start: 20091201
  3. RINLAXER [Concomitant]
     Dosage: 375 MG, UNK
     Route: 048
     Dates: start: 20040409, end: 20090527
  4. PLAVIX [Concomitant]
     Dosage: 75 MG
     Route: 048
     Dates: start: 20100314
  5. JUVELA NICOTINATE [Concomitant]
     Dosage: 300 MG, UNK
     Route: 048
     Dates: start: 20031111, end: 20090527
  6. VITAMEDIN [Concomitant]
     Dosage: 150 MG, UNK
     Route: 048
     Dates: start: 20030529
  7. NEO-MERCAZOLE TAB [Concomitant]
     Dosage: 5 MG, UNK
     Dates: start: 20030513
  8. EPINASTINE HYDROCHLORIDE [Concomitant]
     Dosage: 20 MG
     Route: 048
     Dates: start: 20080117
  9. SIGMART [Concomitant]
     Dosage: 15 MG, UNK
     Route: 048
     Dates: start: 20100314
  10. ASPIRIN [Concomitant]
     Dosage: 200 MG, UNK
     Route: 048
     Dates: start: 20100314
  11. DIOVAN [Suspect]
     Indication: HYPERTENSION
     Dosage: 40 MG, QD
     Route: 048
     Dates: start: 20090310, end: 20100419
  12. OMEPRAZOLE [Concomitant]
     Dosage: 20 MG
     Route: 048
     Dates: start: 20031111, end: 20091201
  13. ISOSORBIDE MONONITRATE [Concomitant]
     Dosage: 40 MG, UNK
     Route: 048
     Dates: start: 20100314
  14. HERBESSER ^DELTA^ [Concomitant]
     Indication: HYPERTENSION
     Dosage: 90 MG, UNK
     Route: 048
     Dates: start: 20050328, end: 20100313
  15. ALFAROL [Concomitant]
     Dosage: 0.5 UG
     Route: 048
     Dates: start: 20040809
  16. HERBESSOR R [Concomitant]
     Dosage: 100 MG
     Route: 048
     Dates: start: 20100314
  17. ACTONEL [Concomitant]
     Dosage: 17.5 MG, UNK
     Route: 048
     Dates: start: 20030614

REACTIONS (4)
  - CORONARY ARTERY STENOSIS [None]
  - BLOOD PRESSURE DECREASED [None]
  - CHEST PAIN [None]
  - ANGINA PECTORIS [None]
